FAERS Safety Report 24122567 (Version 1)
Quarter: 2024Q3

REPORT INFORMATION
  Report Type: Spontaneous
  Country: US (occurrence: US)
  Receive Date: 20240723
  Receipt Date: 20240723
  Transmission Date: 20241017
  Serious: Yes (Hospitalization)
  Sender: HETERO
  Company Number: US-HETERO-HET2024US02364

PATIENT
  Age: 15 Year
  Sex: Female

DRUGS (20)
  1. LITHIUM [Interacting]
     Active Substance: LITHIUM
     Indication: Product used for unknown indication
     Dosage: 300 MILLIGRAM, QD
     Route: 065
  2. LITHIUM [Interacting]
     Active Substance: LITHIUM
     Dosage: 300 MILLIGRAM, BID
     Route: 065
  3. LITHIUM [Interacting]
     Active Substance: LITHIUM
     Dosage: 450 MILLIGRAM, BID
     Route: 065
  4. LYSERGIDE [Interacting]
     Active Substance: LYSERGIDE
     Indication: Product used for unknown indication
     Dosage: 2 DOSAGE FORM
     Route: 065
  5. FLUOXETINE [Concomitant]
     Active Substance: FLUOXETINE HYDROCHLORIDE
     Indication: Major depression
     Dosage: UNK
     Route: 065
     Dates: start: 2021
  6. FLUOXETINE [Concomitant]
     Active Substance: FLUOXETINE HYDROCHLORIDE
     Dosage: INCREASED TO 30 MILLIGRAM, QD
     Route: 065
     Dates: start: 2021
  7. FLUOXETINE [Concomitant]
     Active Substance: FLUOXETINE HYDROCHLORIDE
     Dosage: WAS ADJUSTED TO 40 MG DAILY
     Route: 065
     Dates: start: 2021
  8. FLUOXETINE [Concomitant]
     Active Substance: FLUOXETINE HYDROCHLORIDE
     Dosage: INCREASED TO 50 MG DAILY
     Route: 065
     Dates: start: 2022
  9. FLUOXETINE [Concomitant]
     Active Substance: FLUOXETINE HYDROCHLORIDE
     Dosage: INCREASED TO 60 MG DAILY
     Route: 065
     Dates: start: 2022
  10. FLUOXETINE [Concomitant]
     Active Substance: FLUOXETINE HYDROCHLORIDE
     Dosage: 70 MILLIGRAM, QD
     Route: 065
     Dates: start: 2022
  11. FLUOXETINE [Concomitant]
     Active Substance: FLUOXETINE HYDROCHLORIDE
     Dosage: 80 MILLIGRAM, QD
     Route: 065
     Dates: start: 2022
  12. BUPROPION HYDROCHLORIDE XL [Concomitant]
     Active Substance: BUPROPION HYDROCHLORIDE
     Indication: Anxiety
     Dosage: 150 MILLIGRAM
     Route: 065
     Dates: start: 2022
  13. BUPROPION HYDROCHLORIDE XL [Concomitant]
     Active Substance: BUPROPION HYDROCHLORIDE
     Dosage: INCREASED TO 300 MG DAILY
     Route: 065
     Dates: start: 2022
  14. BUPROPION HYDROCHLORIDE XL [Concomitant]
     Active Substance: BUPROPION HYDROCHLORIDE
     Dosage: 450 MILLIGRAM, QD
     Route: 065
  15. BUPROPION HYDROCHLORIDE XL [Concomitant]
     Active Substance: BUPROPION HYDROCHLORIDE
     Dosage: 150 MILLIGRAM, QD
     Route: 065
  16. HYDROXYZINE [Concomitant]
     Active Substance: HYDROXYZINE HYDROCHLORIDE
     Indication: Anxiety
     Dosage: 25 MILLIGRAM, PRN (AS NEEDED)
     Route: 065
  17. HYDROXYZINE [Concomitant]
     Active Substance: HYDROXYZINE HYDROCHLORIDE
     Dosage: 25 MILLIGRAM, BID AS NEEDED
     Route: 065
     Dates: start: 2022
  18. PRAZOSIN [Concomitant]
     Active Substance: PRAZOSIN
     Indication: Nightmare
     Dosage: 2 MILLIGRAM, QHS
     Route: 065
     Dates: start: 2022
  19. PRAZOSIN [Concomitant]
     Active Substance: PRAZOSIN
     Indication: Injury
     Dosage: 2 MILLIGRAM, QHS
     Route: 065
     Dates: start: 2022
  20. PRAZOSIN [Concomitant]
     Active Substance: PRAZOSIN
     Dosage: 2 MILLIGRAM, QHS
     Route: 065

REACTIONS (2)
  - Drug interaction [Unknown]
  - Seizure [Recovered/Resolved]
